FAERS Safety Report 10015324 (Version 4)
Quarter: 2015Q2

REPORT INFORMATION
  Report Type: Spontaneous
  Country: US (occurrence: US)
  Receive Date: 20140317
  Receipt Date: 20150615
  Transmission Date: 20150821
  Serious: Yes (Hospitalization, Disabling, Other)
  Sender: FDA-Public Use
  Company Number: US-SA-2014SA029979

PATIENT
  Age: 72 Year
  Sex: Female

DRUGS (4)
  1. PLAVIX [Suspect]
     Active Substance: CLOPIDOGREL BISULFATE
     Indication: STENT PLACEMENT
     Route: 048
     Dates: start: 20030801, end: 20091026
  2. NEXIUM [Concomitant]
     Active Substance: ESOMEPRAZOLE MAGNESIUM
  3. ASPIRIN. [Concomitant]
     Active Substance: ASPIRIN
  4. PEPCID [Concomitant]
     Active Substance: FAMOTIDINE

REACTIONS (8)
  - Haemoptysis [Unknown]
  - Injury [Unknown]
  - Purpura [Unknown]
  - Physical disability [Unknown]
  - Pain [Unknown]
  - Anhedonia [Unknown]
  - Tension [Unknown]
  - Contusion [Unknown]

NARRATIVE: CASE EVENT DATE: 20091026
